FAERS Safety Report 13701861 (Version 1)
Quarter: 2017Q2

REPORT INFORMATION
  Report Type: Spontaneous
  Country: FR (occurrence: FR)
  Receive Date: 20170629
  Receipt Date: 20170629
  Transmission Date: 20170830
  Serious: Yes (Hospitalization)
  Sender: FDA-Public Use
  Company Number: FR-JNJFOC-20170621874

PATIENT
  Age: 15 Year
  Sex: Female

DRUGS (1)
  1. RISPERDAL [Suspect]
     Active Substance: RISPERIDONE
     Indication: PSYCHOTIC DISORDER
     Route: 048
     Dates: start: 201601, end: 20170130

REACTIONS (6)
  - Hypersomnia [Recovered/Resolved]
  - Decreased interest [Recovered/Resolved]
  - Weight increased [Recovered/Resolved]
  - Asthenia [Unknown]
  - Slow response to stimuli [Recovered/Resolved]
  - Hallucination [Recovered/Resolved]

NARRATIVE: CASE EVENT DATE: 201612
